FAERS Safety Report 5203452-2 (Version None)
Quarter: 2007Q1

REPORT INFORMATION
  Report Type: 
  Country: None (occurrence: None)
  Receive Date: 20070110
  Receipt Date: 20070102
  Transmission Date: 20070707
  Serious: Yes (Hospitalization)
  Sender: FDA-Public Use
  Company Number: US-JNJFOC-20070100706

PATIENT
  Sex: Female
  Weight: 54.43 kg

DRUGS (3)
  1. TOPAMAX [Suspect]
     Route: 048
  2. TOPAMAX [Suspect]
     Indication: CONVULSION
     Route: 048
  3. VICODIN [Concomitant]
     Indication: BACK PAIN
     Route: 048

REACTIONS (3)
  - BONE DISORDER [None]
  - METABOLIC ACIDOSIS [None]
  - VITAMIN D DECREASED [None]
